FAERS Safety Report 13855684 (Version 7)
Quarter: 2020Q4

REPORT INFORMATION
  Report Type: Spontaneous
  Country: US (occurrence: US)
  Receive Date: 20170810
  Receipt Date: 20201127
  Transmission Date: 20210113
  Serious: Yes (Hospitalization, Other)
  Sender: FDA-Public Use
  Company Number: US-VIFOR (INTERNATIONAL) INC.-VIT-2017-06833

PATIENT
  Age: 87 Year
  Sex: Female

DRUGS (16)
  1. VELTASSA [Suspect]
     Active Substance: PATIROMER
     Route: 048
     Dates: start: 20170621
  2. TRAMADOL HYDROCHLORIDE. [Concomitant]
     Active Substance: TRAMADOL HYDROCHLORIDE
  3. GABAPENTIN. [Concomitant]
     Active Substance: GABAPENTIN
  4. KIONEX [Concomitant]
     Active Substance: SODIUM POLYSTYRENE SULFONATE
  5. COREG [Concomitant]
     Active Substance: CARVEDILOL
  6. VELTASSA [Suspect]
     Active Substance: PATIROMER
     Indication: HYPERKALAEMIA
     Route: 048
     Dates: start: 201705
  7. LASIX [Concomitant]
     Active Substance: FUROSEMIDE
  8. DIGOXIN. [Concomitant]
     Active Substance: DIGOXIN
  9. KAYEXALATE [Concomitant]
     Active Substance: SODIUM POLYSTYRENE SULFONATE
  10. BIOTIN [Concomitant]
     Active Substance: BIOTIN
  11. VELTASSA [Suspect]
     Active Substance: PATIROMER
     Dosage: 2 PACKETS DAILY
     Route: 048
  12. COLECALCIFEROL [Concomitant]
     Active Substance: CHOLECALCIFEROL
  13. INSULIN GLARGINE [Concomitant]
     Active Substance: INSULIN GLARGINE
  14. SENNOSIDE A+B [Concomitant]
     Active Substance: SENNOSIDES A AND B
  15. PANTOPRAZOLE SODIUM. [Concomitant]
     Active Substance: PANTOPRAZOLE SODIUM
  16. MULTIVITAMIN [Concomitant]
     Active Substance: VITAMINS

REACTIONS (9)
  - Blood potassium increased [Unknown]
  - Product preparation error [Unknown]
  - Urinary tract infection staphylococcal [Unknown]
  - Constipation [Recovering/Resolving]
  - Postoperative wound infection [Unknown]
  - Hip fracture [Unknown]
  - Femur fracture [Unknown]
  - Drug intolerance [Unknown]
  - Fall [Unknown]

NARRATIVE: CASE EVENT DATE: 2017
